FAERS Safety Report 8135850-1 (Version None)
Quarter: 2012Q1

REPORT INFORMATION
  Report Type: 
  Country: None (occurrence: None)
  Receive Date: 20120214
  Receipt Date: 20120206
  Transmission Date: 20120608
  Serious: Yes (Hospitalization)
  Sender: FDA-Public Use
  Company Number: US-GLAXOSMITHKLINE-A0965193A

PATIENT
  Age: 60 Year
  Sex: Female
  Weight: 51.8 kg

DRUGS (6)
  1. FLUDROCORTISONE ACETATE [Concomitant]
     Dosage: .1MG PER DAY
  2. MORPHINE SULFATE [Concomitant]
     Dosage: 15MG AS REQUIRED
  3. ARIXTRA [Concomitant]
     Dosage: 2.5MG PER DAY
  4. VOTRIENT [Suspect]
     Indication: NON-SMALL CELL LUNG CANCER
     Dosage: 600MG PER DAY
     Route: 048
     Dates: start: 20110830
  5. PREDNISONE TAB [Concomitant]
     Dosage: 9MG PER DAY
  6. LORAZEPAM [Concomitant]
     Dosage: .5MG AS REQUIRED

REACTIONS (8)
  - ALANINE AMINOTRANSFERASE INCREASED [None]
  - LYMPHOPENIA [None]
  - ASPARTATE AMINOTRANSFERASE INCREASED [None]
  - STATUS EPILEPTICUS [None]
  - BLOOD BILIRUBIN INCREASED [None]
  - HYPOMAGNESAEMIA [None]
  - THROMBOCYTOPENIA [None]
  - PROTEINURIA [None]
